FAERS Safety Report 6041210-X (Version None)
Quarter: 2009Q1

REPORT INFORMATION
  Report Type: 
  Country: None (occurrence: None)
  Receive Date: 20090116
  Receipt Date: 20080916
  Transmission Date: 20090719
  Serious: No
  Sender: FDA-Public Use
  Company Number: US-BRISTOL-MYERS SQUIBB COMPANY-14337869

PATIENT
  Age: 2 Decade
  Sex: Male

DRUGS (2)
  1. ABILIFY [Suspect]
     Dosage: ABILFY WAS INCREASED FROM 2MG/DAILY TO 5MG
  2. ANTIDEPRESSANT [Concomitant]

REACTIONS (1)
  - ANXIETY [None]
